FAERS Safety Report 18767494 (Version 5)
Quarter: 2022Q1

REPORT INFORMATION
  Report Type: Report from Study
  Country: CA (occurrence: CA)
  Receive Date: 20210121
  Receipt Date: 20220225
  Transmission Date: 20220423
  Serious: Yes (Other)
  Sender: FDA-Public Use
  Company Number: CA-SHIRE-CA201918913AA

PATIENT
  Age: 64 Year
  Sex: Female

DRUGS (15)
  1. HUMAN IMMUNOGLOBULIN G [Suspect]
     Active Substance: HUMAN IMMUNOGLOBULIN G
     Indication: Primary immunodeficiency syndrome
     Dosage: 6 GRAM, 1X/WEEK
     Route: 058
     Dates: start: 20181121
  2. HUMAN IMMUNOGLOBULIN G [Suspect]
     Active Substance: HUMAN IMMUNOGLOBULIN G
     Dosage: 10 GRAM, 1/WEEK
     Route: 058
     Dates: start: 20181121
  3. HUMAN IMMUNOGLOBULIN G [Suspect]
     Active Substance: HUMAN IMMUNOGLOBULIN G
     Dosage: 10 GRAM, 1/WEEK
     Route: 065
     Dates: start: 20181121
  4. CLARITHROMYCIN [Concomitant]
     Active Substance: CLARITHROMYCIN
     Dosage: UNK
     Route: 065
  5. FLUOXETINE [Concomitant]
     Active Substance: FLUOXETINE HYDROCHLORIDE
     Dosage: 20 MILLIGRAM, QD
     Route: 065
     Dates: start: 20210122
  6. TELMISARTAN [Concomitant]
     Active Substance: TELMISARTAN
     Dosage: 80 MILLIGRAM, QD
     Route: 065
  7. TYLENOL [Concomitant]
     Active Substance: ACETAMINOPHEN
     Dosage: UNK
     Route: 065
  8. QUININE [Concomitant]
     Active Substance: QUININE
     Dosage: 300 MILLIGRAM, QD
     Route: 065
  9. DIAZEPAM [Concomitant]
     Active Substance: DIAZEPAM
     Dosage: 10 MILLIGRAM, BID
     Route: 065
  10. NITRAZEPAM [Concomitant]
     Active Substance: NITRAZEPAM
     Dosage: UNK
     Route: 065
  11. VITAMIN B AND C COMPLEX [Concomitant]
     Dosage: 1 DOSAGE FORM, QD
     Route: 065
  12. VITAMIN D NOS [Concomitant]
     Active Substance: VITAMIN D NOS
     Dosage: 1000 INTERNATIONAL UNIT, QD
     Route: 065
  13. IRON [Concomitant]
     Active Substance: IRON
     Dosage: UNK
     Route: 065
  14. DOXYCYCLINE HYCLATE [Concomitant]
     Active Substance: DOXYCYCLINE HYCLATE
     Indication: Nasopharyngitis
     Dosage: 100 MILLIGRAM, FOR 10 DAYS
     Route: 065
     Dates: start: 20210126
  15. OXYCODONE [Concomitant]
     Active Substance: OXYCODONE
     Dosage: UNK
     Route: 065

REACTIONS (10)
  - Bronchitis [Not Recovered/Not Resolved]
  - Nasopharyngitis [Not Recovered/Not Resolved]
  - Rash [Recovered/Resolved]
  - Fibromyalgia [Not Recovered/Not Resolved]
  - SARS-CoV-2 test positive [Unknown]
  - Mass [Unknown]
  - Memory impairment [Not Recovered/Not Resolved]
  - Blood pressure increased [Unknown]
  - Influenza like illness [Not Recovered/Not Resolved]
  - Therapy interrupted [Unknown]

NARRATIVE: CASE EVENT DATE: 20190604
